FAERS Safety Report 5977598-5 (Version None)
Quarter: 2008Q4

REPORT INFORMATION
  Report Type: 
  Country: None (occurrence: None)
  Receive Date: 20081203
  Receipt Date: 20081121
  Transmission Date: 20090506
  Serious: Yes (Hospitalization)
  Sender: FDA-Public Use
  Company Number: DE-NOVOPROD-279495

PATIENT
  Sex: Male
  Weight: 26.7 kg

DRUGS (2)
  1. NORDITROPIN NORDIFLEX [Suspect]
     Indication: SMALL FOR DATES BABY
     Dosage: .9 MG, QD
     Route: 058
     Dates: start: 20071120
  2. NORDITROPIN NORDIFLEX [Suspect]
     Dosage: 1 MG, QD
     Route: 058

REACTIONS (1)
  - TONSILLITIS STREPTOCOCCAL [None]
